FAERS Safety Report 4458128-6 (Version None)
Quarter: 2004Q3

REPORT INFORMATION
  Report Type: 
  Country: None (occurrence: None)
  Receive Date: 20040924
  Receipt Date: 20040528
  Transmission Date: 20050211
  Serious: Yes (Hospitalization)
  Sender: FDA-Public Use
  Company Number: FR-GLAXOSMITHKLINE-B0334451A

PATIENT
  Age: 70 Year
  Sex: Female
  Weight: 67.3 kg

DRUGS (2)
  1. AVANDIA [Suspect]
     Route: 048
     Dates: start: 20030910
  2. DAONIL [Concomitant]
     Dosage: 15MG PER DAY
     Route: 048
     Dates: start: 20030801

REACTIONS (3)
  - GENERALISED OEDEMA [None]
  - LEUKAEMIA [None]
  - LYMPHOCYTOSIS [None]
